FAERS Safety Report 6375648-8 (Version None)
Quarter: 2009Q3

REPORT INFORMATION
  Report Type: 
  Country: None (occurrence: None)
  Receive Date: 20090918
  Receipt Date: 20090918
  Transmission Date: 20100115
  Serious: Yes (Hospitalization)
  Sender: FDA-Public Use
  Company Number: None

PATIENT
  Sex: Male
  Weight: 86.1834 kg

DRUGS (17)
  1. OXALIPLATIN [Suspect]
     Indication: COLON CANCER METASTATIC
     Dosage: 172MG EVERY 2 WEEKS IV DRIP
     Route: 041
     Dates: start: 20090901, end: 20090901
  2. OXALIPLATIN [Suspect]
     Indication: COLON CANCER METASTATIC
     Dosage: 172MG EVERY 2 WEEKS IV DRIP
     Route: 041
     Dates: start: 20090915, end: 20090915
  3. FLUOROURACIL [Concomitant]
  4. LEUCOVORIN CALCIUM [Concomitant]
  5. ALOXI [Concomitant]
  6. LORAZEPAM [Concomitant]
  7. DEXAMETHASONE 4MG TAB [Concomitant]
  8. ATENOLOL [Concomitant]
  9. IMODIUM [Concomitant]
  10. COMPAZINE [Concomitant]
  11. MULTI-VITAMINS [Concomitant]
  12. GEMFIBROZIL [Concomitant]
  13. NIACIN [Concomitant]
  14. ADVAIR DISKUS 100/50 [Concomitant]
  15. NEURONTIN [Concomitant]
  16. OXYCODONE HCL [Concomitant]
  17. MS CONTIN [Concomitant]

REACTIONS (6)
  - BLOOD PRESSURE DECREASED [None]
  - CHILLS [None]
  - DIPLOPIA [None]
  - ERYTHEMA [None]
  - GAIT DISTURBANCE [None]
  - PYREXIA [None]
